FAERS Safety Report 4991037-2 (Version None)
Quarter: 2006Q2

REPORT INFORMATION
  Report Type: 
  Country: None (occurrence: None)
  Receive Date: 20060428
  Receipt Date: 20060421
  Transmission Date: 20061013
  Serious: Yes (Other)
  Sender: FDA-Public Use
  Company Number: 2006US000798

PATIENT
  Age: 38 Year
  Sex: Female

DRUGS (1)
  1. PROTOPIC [Suspect]
     Indication: VITILIGO
     Dosage: TOPICAL
     Route: 061
     Dates: start: 20050101

REACTIONS (1)
  - BREAST CANCER FEMALE [None]
